FAERS Safety Report 22265484 (Version 1)
Quarter: 2023Q2

REPORT INFORMATION
  Report Type: Spontaneous
  Country: US (occurrence: None)
  Receive Date: 20230428
  Receipt Date: 20230428
  Transmission Date: 20230722
  Serious: Yes (Other)
  Sender: FDA-Public Use
  Company Number: 2023A097583

PATIENT
  Age: 65 Year
  Sex: Female

DRUGS (5)
  1. QUETIAPINE [Suspect]
     Active Substance: QUETIAPINE
     Indication: Postoperative delirium
     Route: 048
  2. CLINDAMYCIN [Concomitant]
     Active Substance: CLINDAMYCIN
  3. AZTREONAM [Concomitant]
     Active Substance: AZTREONAM
  4. LORAZEPAM [Concomitant]
     Active Substance: LORAZEPAM
     Indication: Postoperative delirium
  5. HALOPERIDOL [Concomitant]
     Active Substance: HALOPERIDOL
     Indication: Postoperative delirium

REACTIONS (2)
  - Electrocardiogram QT prolonged [Unknown]
  - Off label use [Unknown]
